FAERS Safety Report 5106417-4 (Version None)
Quarter: 2006Q3

REPORT INFORMATION
  Report Type: 
  Country: None (occurrence: None)
  Receive Date: 20060918
  Receipt Date: 20060901
  Transmission Date: 20061208
  Serious: Yes (Other)
  Sender: FDA-Public Use
  Company Number: PHNU2006DE02985

PATIENT
  Sex: Female

DRUGS (5)
  1. FEMARA [Suspect]
     Indication: BREAST CANCER
     Dosage: 1 DF, QD
     Route: 048
     Dates: start: 20010101
  2. LEKTINOL [Concomitant]
     Indication: BREAST CANCER
     Dosage: UNK, Q3MO
     Dates: start: 20010101
  3. VITAMINS [Concomitant]
     Route: 065
  4. ENZYMES [Concomitant]
     Route: 065
  5. MINERALS NOS [Concomitant]
     Route: 065

REACTIONS (8)
  - ARTHRALGIA [None]
  - BONE PAIN [None]
  - COMPUTERISED TOMOGRAM ABNORMAL [None]
  - OSTEOARTHRITIS [None]
  - OSTEONECROSIS [None]
  - OSTEOPOROSIS [None]
  - PAIN [None]
  - SCINTIGRAPHY [None]
